FAERS Safety Report 4513060-4 (Version None)
Quarter: 2004Q4

REPORT INFORMATION
  Report Type: 
  Country: None (occurrence: None)
  Receive Date: 20041124
  Receipt Date: 20041124
  Transmission Date: 20050328
  Serious: No
  Sender: FDA-Public Use
  Company Number: None

PATIENT
  Sex: Female

DRUGS (1)
  1. BEXTRA [Suspect]

REACTIONS (7)
  - ANTINUCLEAR ANTIBODY POSITIVE [None]
  - BLOOD CHOLESTEROL INCREASED [None]
  - CEREBRAL ISCHAEMIA [None]
  - CONTUSION [None]
  - DRY MOUTH [None]
  - HYPOAESTHESIA [None]
  - PARAESTHESIA [None]
